FAERS Safety Report 10726192 (Version 1)
Quarter: 2015Q1

REPORT INFORMATION
  Report Type: Spontaneous
  Country: US (occurrence: None)
  Receive Date: 20150120
  Receipt Date: 20150120
  Transmission Date: 20150721
  Serious: Yes (Other)
  Sender: FDA-Public Use
  Company Number: None

PATIENT
  Age: 81 Year
  Sex: Female

DRUGS (1)
  1. AFINITOR [Suspect]
     Active Substance: EVEROLIMUS
     Indication: BREAST CANCER
     Dosage: TABLET
     Route: 048
     Dates: start: 20150112, end: 20150116

REACTIONS (5)
  - Asthenia [None]
  - Decreased appetite [None]
  - Dyspnoea [None]
  - Chills [None]
  - Muscle spasms [None]

NARRATIVE: CASE EVENT DATE: 20150113
